FAERS Safety Report 6283316-6 (Version None)
Quarter: 2009Q3

REPORT INFORMATION
  Report Type: 
  Country: None (occurrence: None)
  Receive Date: 20090724
  Receipt Date: 20090716
  Transmission Date: 20100115
  Serious: Yes (Hospitalization, Other)
  Sender: FDA-Public Use
  Company Number: JP-JNJFOC-20090706037

PATIENT
  Age: 5 Decade
  Sex: Female

DRUGS (2)
  1. RISPERDAL [Suspect]
     Indication: SCHIZOPHRENIA
     Route: 048
  2. ZOLPIDEM [Concomitant]
     Indication: INSOMNIA
     Route: 065

REACTIONS (11)
  - BLEPHAROSPASM [None]
  - DELUSION [None]
  - DIZZINESS [None]
  - EXTRAPYRAMIDAL DISORDER [None]
  - HALLUCINATION [None]
  - HYPERACUSIS [None]
  - INITIAL INSOMNIA [None]
  - IRRITABILITY [None]
  - THIRST [None]
  - TREATMENT NONCOMPLIANCE [None]
  - TREMOR [None]
